FAERS Safety Report 7006933-4 (Version None)
Quarter: 2010Q3

REPORT INFORMATION
  Report Type: 
  Country: None (occurrence: None)
  Receive Date: 20100922
  Receipt Date: 20100916
  Transmission Date: 20110219
  Serious: Yes (Other)
  Sender: FDA-Public Use
  Company Number: SE-JNJFOC-20051104327

PATIENT
  Age: 64 Year
  Sex: Male

DRUGS (1)
  1. IPREN [Suspect]
     Indication: PAIN
     Dosage: 1 TABLET

REACTIONS (9)
  - ABDOMINAL PAIN UPPER [None]
  - CONDITION AGGRAVATED [None]
  - COUGH [None]
  - DIARRHOEA [None]
  - DYSPHONIA [None]
  - NASAL CONGESTION [None]
  - RESPIRATORY DISORDER [None]
  - SWELLING FACE [None]
  - VOMITING [None]
